FAERS Safety Report 5690406-5 (Version None)
Quarter: 2008Q1

REPORT INFORMATION
  Report Type: 
  Country: None (occurrence: None)
  Receive Date: 20080331
  Receipt Date: 20080331
  Transmission Date: 20080703
  Serious: Yes (Life-Threatening)
  Sender: FDA-Public Use
  Company Number: None

PATIENT
  Age: 48 Year
  Sex: Male
  Weight: 112.4921 kg

DRUGS (8)
  1. HUMIRA [Suspect]
     Indication: SERONEGATIVE ARTHRITIS
     Dosage: 40 MG WEEKLY SQ
     Route: 058
     Dates: start: 20070118, end: 20080228
  2. LEVEMIR [Concomitant]
  3. HUMALOG [Concomitant]
  4. METHOTREXATE [Concomitant]
  5. TRAZODONE HCL [Concomitant]
  6. EFFEXOR [Concomitant]
  7. BENICAR [Concomitant]
  8. RESTORIL [Concomitant]

REACTIONS (3)
  - IMMUNE SYSTEM DISORDER [None]
  - PNEUMONIA CRYPTOCOCCAL [None]
  - RESPIRATORY DISTRESS [None]
